FAERS Safety Report 8516601-5 (Version None)
Quarter: 2012Q3

REPORT INFORMATION
  Report Type: 
  Country: None (occurrence: None)
  Receive Date: 20120718
  Receipt Date: 20120705
  Transmission Date: 20120928
  Serious: Yes (Hospitalization)
  Sender: FDA-Public Use
  Company Number: JP-009507513-1207JPN001581

PATIENT

DRUGS (4)
  1. TELAPREVIR [Concomitant]
     Dosage: UNK
     Route: 048
     Dates: start: 20120618, end: 20120621
  2. TELAPREVIR [Concomitant]
     Dosage: 750 MG, QD
     Route: 048
     Dates: start: 20120625
  3. PEG-INTRON [Suspect]
     Dosage: 1.5 MICROGRAM PER KILOGRAM, UNK
     Route: 058
     Dates: start: 20120618
  4. REBETOL [Suspect]
     Dosage: 800 MG, QD
     Route: 048
     Dates: start: 20120618

REACTIONS (1)
  - RASH [None]
